FAERS Safety Report 6342505-2 (Version None)
Quarter: 2009Q3

REPORT INFORMATION
  Report Type: 
  Country: None (occurrence: None)
  Receive Date: 20090908
  Receipt Date: 20061120
  Transmission Date: 20100115
  Serious: No
  Sender: FDA-Public Use
  Company Number: JP-ROCHE-403156

PATIENT
  Sex: Female

DRUGS (6)
  1. OSELTAMIVIR [Suspect]
     Indication: INFLUENZA
     Route: 048
     Dates: start: 20050217, end: 20050222
  2. EPIRIZOLE [Concomitant]
     Dosage: DRUG NAME REPORTED AS ANALOCK.
     Route: 048
  3. TRANSAMIN [Concomitant]
     Route: 048
  4. ACDEAM [Concomitant]
     Route: 048
  5. ASVERIN [Concomitant]
     Route: 048
  6. CALONAL [Concomitant]
     Route: 048

REACTIONS (1)
  - ABORTION INDUCED [None]
